FAERS Safety Report 10198227 (Version 2)
Quarter: 2014Q2

REPORT INFORMATION
  Report Type: Other
  Country: FR (occurrence: FR)
  Receive Date: 20140527
  Receipt Date: 20140626
  Transmission Date: 20141212
  Serious: Yes (Other)
  Sender: FDA-Public Use
  Company Number: FR-TAKEDA-2014TEU004472

PATIENT
  Age: 78 Year
  Sex: Female

DRUGS (8)
  1. OGAST [Suspect]
     Indication: PRODUCT USED FOR UNKNOWN INDICATION
     Dosage: UNK
     Route: 048
     Dates: start: 201401, end: 20140224
  2. KALEORID [Concomitant]
  3. PLAVIX [Concomitant]
  4. CRESTOR [Concomitant]
  5. LASILIX                            /00032601/ [Concomitant]
  6. IMOVANE [Concomitant]
  7. LERCAN [Concomitant]
  8. XARELTO [Concomitant]

REACTIONS (1)
  - Subacute cutaneous lupus erythematosus [Not Recovered/Not Resolved]
